FAERS Safety Report 8294206-1 (Version None)
Quarter: 2012Q2

REPORT INFORMATION
  Report Type: 
  Country: None (occurrence: None)
  Receive Date: 20120418
  Receipt Date: 20120410
  Transmission Date: 20120825
  Serious: Yes (Life-Threatening)
  Sender: FDA-Public Use
  Company Number: FR-JNJFOC-20120404372

PATIENT
  Age: 61 Year
  Sex: Female

DRUGS (1)
  1. REMICADE [Suspect]
     Indication: PSORIASIS
     Dosage: 9TH INFUSION
     Route: 042
     Dates: end: 20120320

REACTIONS (6)
  - DYSPNOEA [None]
  - HOT FLUSH [None]
  - ANAPHYLACTIC SHOCK [None]
  - PHOSPHENES [None]
  - INFUSION RELATED REACTION [None]
  - RASH [None]
